FAERS Safety Report 9358637 (Version 2)
Quarter: 2013Q3

REPORT INFORMATION
  Report Type: Spontaneous
  Country: US (occurrence: US)
  Receive Date: 20130620
  Receipt Date: 20130701
  Transmission Date: 20140515
  Serious: Yes (Other)
  Sender: FDA-Public Use
  Company Number: US-GILEAD-2013-0077443

PATIENT
  Age: 61 Year
  Sex: Female

DRUGS (2)
  1. LETAIRIS [Suspect]
     Indication: PULMONARY HYPERTENSION
     Dosage: 5 MG, QD
     Dates: start: 20110903
  2. LETAIRIS [Suspect]
     Indication: SCLERODERMA

REACTIONS (4)
  - Haematemesis [Unknown]
  - Pyrexia [Unknown]
  - Cough [Unknown]
  - Back pain [Unknown]
